FAERS Safety Report 25923565 (Version 1)
Quarter: 2025Q4

REPORT INFORMATION
  Report Type: Report from Study
  Country: US (occurrence: US)
  Receive Date: 20251015
  Receipt Date: 20251015
  Transmission Date: 20260118
  Serious: Yes (Other)
  Sender: ADAMAS PHARMA
  Company Number: US-ADM-ADM202510-004081

PATIENT
  Age: 68 Year
  Sex: Female

DRUGS (2)
  1. GOCOVRI [Suspect]
     Active Substance: AMANTADINE
     Indication: Dyskinesia
     Dosage: AT BEDTIME
     Route: 048
     Dates: start: 20250925, end: 20250930
  2. GOCOVRI [Suspect]
     Active Substance: AMANTADINE
     Indication: Parkinson^s disease

REACTIONS (5)
  - Head injury [Unknown]
  - Hypotension [Unknown]
  - Syncope [Unknown]
  - Fall [Unknown]
  - Product use issue [Unknown]

NARRATIVE: CASE EVENT DATE: 20250925
